FAERS Safety Report 18966665 (Version 1)
Quarter: 2021Q1

REPORT INFORMATION
  Report Type: Spontaneous
  Country: US (occurrence: US)
  Receive Date: 20210303
  Receipt Date: 20210303
  Transmission Date: 20210420
  Serious: No
  Sender: FDA-Public Use
  Company Number: US-ENDO PHARMACEUTICALS INC-2020-003559

PATIENT
  Age: 56 Year
  Sex: Female
  Weight: 65.31 kg

DRUGS (2)
  1. XIAFLEX [Suspect]
     Active Substance: COLLAGENASE CLOSTRIDIUM HISTOLYTICUM
     Indication: DUPUYTREN^S CONTRACTURE
     Dosage: UNK UNKNOWN, UNKNOWN; FIRST INJECTION TO RIGHT HAND
     Route: 026
     Dates: start: 201909
  2. TOPAMAX [Concomitant]
     Active Substance: TOPIRAMATE
     Indication: SEIZURE

REACTIONS (2)
  - Dupuytren^s contracture [Unknown]
  - Drug ineffective [Unknown]

NARRATIVE: CASE EVENT DATE: 201909
